FAERS Safety Report 7463297-X (Version None)
Quarter: 2011Q2

REPORT INFORMATION
  Report Type: 
  Country: None (occurrence: None)
  Receive Date: 20110506
  Receipt Date: 20110429
  Transmission Date: 20111010
  Serious: Yes (Other)
  Sender: FDA-Public Use
  Company Number: B0716954A

PATIENT
  Age: 32 Year
  Sex: Female

DRUGS (2)
  1. NICOTINE [Suspect]
     Indication: SMOKING CESSATION THERAPY
     Route: 048
  2. SYMBICORT [Concomitant]
     Indication: ASTHMA
     Route: 055
     Dates: start: 20010101

REACTIONS (4)
  - LIP SWELLING [None]
  - RASH [None]
  - PARAESTHESIA ORAL [None]
  - GLOSSODYNIA [None]
